FAERS Safety Report 9747298 (Version 1)
Quarter: 2013Q4

REPORT INFORMATION
  Report Type: Report from Study
  Country: GR (occurrence: GR)
  Receive Date: 20131212
  Receipt Date: 20131212
  Transmission Date: 20140711
  Serious: Yes (Death)
  Sender: FDA-Public Use
  Company Number: GR-ROCHE-1313931

PATIENT
  Age: 81 Year
  Sex: Male

DRUGS (1)
  1. RANIBIZUMAB [Suspect]
     Indication: MACULAR OEDEMA
     Route: 050

REACTIONS (1)
  - Myocardial infarction [Fatal]
